FAERS Safety Report 8546449-7 (Version None)
Quarter: 2012Q3

REPORT INFORMATION
  Report Type: 
  Country: None (occurrence: None)
  Receive Date: 20120727
  Receipt Date: 20120109
  Transmission Date: 20120928
  Serious: No
  Sender: FDA-Public Use
  Company Number: US-ASTRAZENECA-2012SE02000

PATIENT
  Age: 21 Year
  Sex: Female

DRUGS (1)
  1. SEROQUEL [Suspect]
     Indication: BIPOLAR DISORDER
     Route: 048

REACTIONS (5)
  - COGNITIVE DISORDER [None]
  - DRUG DOSE OMISSION [None]
  - ASPERGER'S DISORDER [None]
  - ANGER [None]
  - ILLOGICAL THINKING [None]
